FAERS Safety Report 19036367 (Version 1)
Quarter: 2021Q1

REPORT INFORMATION
  Report Type: Spontaneous
  Country: US (occurrence: US)
  Receive Date: 20210320
  Receipt Date: 20210320
  Transmission Date: 20210420
  Serious: Yes (Other)
  Sender: FDA-Public Use
  Company Number: None

PATIENT
  Age: 45 Year
  Sex: Female
  Weight: 51.75 kg

DRUGS (3)
  1. ZONISAMIDE 100MG CAPSULES [Suspect]
     Active Substance: ZONISAMIDE
     Indication: MIGRAINE
     Route: 048
     Dates: start: 20210307, end: 20210317
  2. SPIRONOLACTONE. [Concomitant]
     Active Substance: SPIRONOLACTONE
  3. CENTRUM [Concomitant]
     Active Substance: VITAMINS

REACTIONS (2)
  - Acute myopia [None]
  - Miosis [None]

NARRATIVE: CASE EVENT DATE: 20210317
